FAERS Safety Report 9208902 (Version 1)
Quarter: 2013Q2

REPORT INFORMATION
  Report Type: Spontaneous
  Country: US (occurrence: None)
  Receive Date: 20130404
  Receipt Date: 20130404
  Transmission Date: 20140414
  Serious: Yes (Other)
  Sender: FDA-Public Use
  Company Number: None

PATIENT
  Age: 88 Year
  Sex: Female

DRUGS (2)
  1. WARFARIN [Suspect]
     Dosage: QD M.T.W.F.SAT.SUN
     Route: 048
  2. WARFARIN [Suspect]
     Dosage: QD THURSDAY
     Route: 048

REACTIONS (1)
  - International normalised ratio increased [None]
